FAERS Safety Report 9768658 (Version 2)
Quarter: 2013Q4

REPORT INFORMATION
  Report Type: Report from Study
  Country: DE (occurrence: DE)
  Receive Date: 20131218
  Receipt Date: 20131218
  Transmission Date: 20140711
  Serious: Yes (Life-Threatening, Hospitalization)
  Sender: FDA-Public Use
  Company Number: DE-ROCHE-1283548

PATIENT
  Age: 60 Year
  Sex: Female
  Weight: 56 kg

DRUGS (10)
  1. METHOXY POLYETHYLENE GLYCOL-EPOETIN BETA [Suspect]
     Indication: NEPHROGENIC ANAEMIA
     Dosage: LAST DOSE PRIOR TO SAE ON 07/AUG/2012
     Route: 058
     Dates: start: 20090730
  2. TACROLIMUS [Concomitant]
     Route: 065
     Dates: start: 20101216
  3. TACROLIMUS [Concomitant]
     Route: 065
     Dates: start: 20101216, end: 20120823
  4. CELLCEPT [Concomitant]
     Route: 065
     Dates: start: 20110922
  5. CELLCEPT [Concomitant]
     Route: 065
     Dates: start: 20120726, end: 20120726
  6. ALFACALCIDOL [Concomitant]
     Route: 065
     Dates: start: 20110615
  7. MYFORTIC [Concomitant]
     Route: 065
     Dates: start: 20120713, end: 20120726
  8. PANTOZOL (GERMANY) [Concomitant]
     Route: 065
     Dates: start: 20120724
  9. PANTOZOL (GERMANY) [Concomitant]
     Route: 065
     Dates: start: 20120907
  10. ADVAGRAF [Concomitant]
     Route: 065
     Dates: start: 20120823, end: 20121019

REACTIONS (3)
  - Diarrhoea [Recovered/Resolved]
  - Atrial fibrillation [Recovered/Resolved]
  - Chest pain [Unknown]
